FAERS Safety Report 9742627 (Version 1)
Quarter: 2013Q4

REPORT INFORMATION
  Report Type: Spontaneous
  Country: US (occurrence: US)
  Receive Date: 20131210
  Receipt Date: 20131210
  Transmission Date: 20140711
  Serious: No
  Sender: FDA-Public Use
  Company Number: US-GILEAD-2009-0024799

PATIENT
  Sex: Female
  Weight: 114.3 kg

DRUGS (16)
  1. LETAIRIS [Suspect]
     Indication: PULMONARY ARTERIAL HYPERTENSION
     Route: 048
  2. CARDIZEM [Concomitant]
  3. DIGOXIN [Concomitant]
  4. LASIX [Concomitant]
  5. VYTORIN [Concomitant]
  6. ASPIRIN [Concomitant]
  7. REVATIO [Concomitant]
  8. OXYGEN [Concomitant]
  9. COMBIVENT [Concomitant]
  10. ADVAIR [Concomitant]
  11. LORAZEPAM [Concomitant]
  12. GABAPENTIN [Concomitant]
  13. FLEXERIL [Concomitant]
  14. PROVIGIL [Concomitant]
  15. FISH OIL [Concomitant]
  16. POTASSIUM [Concomitant]

REACTIONS (4)
  - Fatigue [Unknown]
  - Cardiac disorder [Unknown]
  - Drug ineffective [Unknown]
  - Pulmonary arterial hypertension [Unknown]
